FAERS Safety Report 25501677 (Version 1)
Quarter: 2025Q3

REPORT INFORMATION
  Report Type: Spontaneous
  Country: CA (occurrence: CA)
  Receive Date: 20250701
  Receipt Date: 20250701
  Transmission Date: 20251020
  Serious: Yes (Other)
  Sender: TEVA
  Company Number: CA-TEVA-VS-3345693

PATIENT
  Age: 74 Year
  Sex: Female

DRUGS (1)
  1. QUETIAPINE FUMARATE [Suspect]
     Active Substance: QUETIAPINE FUMARATE
     Indication: Bipolar disorder
     Route: 048

REACTIONS (12)
  - Diabetes mellitus [Recovered/Resolved]
  - Hereditary haemochromatosis [Recovered/Resolved]
  - Therapy cessation [Recovered/Resolved]
  - Product use issue [Recovered/Resolved]
  - Obsessive-compulsive disorder [Recovered/Resolved]
  - Asthenia [Recovered/Resolved]
  - Contraindicated product prescribed [Recovered/Resolved]
  - Hypersomnia [Recovered/Resolved]
  - Cardiac disorder [Recovered/Resolved]
  - Liver disorder [Recovered/Resolved]
  - Incorrect dose administered [Recovered/Resolved]
  - Fatigue [Recovered/Resolved]
